FAERS Safety Report 15862045 (Version 1)
Quarter: 2019Q1

REPORT INFORMATION
  Report Type: Report from Study
  Country: None (occurrence: TR)
  Receive Date: 20190124
  Receipt Date: 20190124
  Transmission Date: 20190417
  Serious: Yes (Hospitalization)
  Sender: FDA-Public Use
  Company Number: TR-ABBVIE-19S-161-2633501-00

PATIENT
  Age: 74 Year
  Sex: Male
  Weight: 75 kg

DRUGS (11)
  1. DUODOPA [Suspect]
     Active Substance: CARBIDOPA\LEVODOPA
     Dosage: MD (ML): 9.80 CD(ML): 4.00 ED(ML): 1.00
     Route: 050
     Dates: start: 20190121
  2. DOPALEVO [Concomitant]
     Indication: PARKINSON^S DISEASE
     Route: 048
     Dates: end: 20190121
  3. DUODOPA [Suspect]
     Active Substance: CARBIDOPA\LEVODOPA
     Indication: PARKINSON^S DISEASE
     Dosage: MD (ML): 9.80 CD (ML): 4.00 ED (ML): 1.00
     Route: 050
     Dates: start: 20190116, end: 20190118
  4. DESYREL [Concomitant]
     Active Substance: TRAZODONE HYDROCHLORIDE
     Indication: SLEEP DISORDER
     Route: 048
  5. SECITA [Concomitant]
     Indication: DEPRESSION
     Route: 048
  6. PK-MERZ [Concomitant]
     Active Substance: AMANTADINE
     Indication: PARKINSON^S DISEASE
     Route: 048
  7. DOPADEX SR [Concomitant]
     Indication: PARKINSON^S DISEASE
     Route: 048
  8. PK-MERZ [Concomitant]
     Active Substance: AMANTADINE
     Indication: PRODUCT USED FOR UNKNOWN INDICATION
     Dates: end: 20190121
  9. PK-MERZ [Concomitant]
     Active Substance: AMANTADINE
     Dates: start: 20190121
  10. SEROQUEL [Concomitant]
     Active Substance: QUETIAPINE FUMARATE
     Indication: PARKINSON^S DISEASE
     Route: 048
  11. RASALAS [Concomitant]
     Indication: PARKINSON^S DISEASE
     Route: 048

REACTIONS (2)
  - C-reactive protein increased [Recovered/Resolved]
  - Stoma site pain [Recovered/Resolved]

NARRATIVE: CASE EVENT DATE: 20190118
